FAERS Safety Report 5637123-5 (Version None)
Quarter: 2008Q1

REPORT INFORMATION
  Report Type: 
  Country: None (occurrence: None)
  Receive Date: 20080225
  Receipt Date: 20080211
  Transmission Date: 20080703
  Serious: Yes (Death, Life-Threatening, Hospitalization)
  Sender: FDA-Public Use
  Company Number: AU-ROCHE-541025

PATIENT
  Age: 78 Year
  Sex: Male
  Weight: 68 kg

DRUGS (1)
  1. XELODA [Suspect]
     Route: 048
     Dates: start: 20071105, end: 20071115

REACTIONS (5)
  - ACIDOSIS [None]
  - DEHYDRATION [None]
  - DIARRHOEA [None]
  - HEPATIC FAILURE [None]
  - HYPOKALAEMIA [None]
